FAERS Safety Report 22280335 (Version 1)
Quarter: 2023Q2

REPORT INFORMATION
  Report Type: Spontaneous
  Country: US (occurrence: US)
  Receive Date: 20230503
  Receipt Date: 20230503
  Transmission Date: 20230722
  Serious: Yes (Hospitalization)
  Sender: FDA-Public Use
  Company Number: US-AMGEN-USASP2023072729

PATIENT
  Age: 15 Year
  Sex: Male

DRUGS (4)
  1. RITUXIMAB [Suspect]
     Active Substance: RITUXIMAB
     Indication: Encephalitis autoimmune
     Route: 065
  2. LORAZEPAM [Concomitant]
     Active Substance: LORAZEPAM
     Indication: Seizure
     Dosage: 3 MILLIGRAM, Q4H
     Route: 042
  3. LORAZEPAM [Concomitant]
     Active Substance: LORAZEPAM
     Dosage: 20 MILLIGRAM, QD
     Route: 042
  4. PREDNISOLONE [Concomitant]
     Active Substance: PREDNISOLONE
     Indication: Encephalitis autoimmune
     Dosage: UNK
     Route: 065

REACTIONS (6)
  - Catatonia [Recovered/Resolved]
  - Hyperhidrosis [Unknown]
  - Tachycardia [Unknown]
  - Hypertension [Unknown]
  - Oxygen saturation decreased [Unknown]
  - Off label use [Unknown]
